FAERS Safety Report 5521048-X (Version None)
Quarter: 2007Q4

REPORT INFORMATION
  Report Type: 
  Country: None (occurrence: None)
  Receive Date: 20071119
  Receipt Date: 20071108
  Transmission Date: 20080405
  Serious: Yes (Hospitalization)
  Sender: FDA-Public Use
  Company Number: US-JNJFOC-20071103572

PATIENT
  Sex: Female
  Weight: 73.48 kg

DRUGS (4)
  1. DURAGESIC-100 [Suspect]
     Indication: BACK PAIN
     Route: 062
  2. DURAGESIC-100 [Suspect]
     Indication: PAIN
     Route: 062
  3. LORAZEPAM [Suspect]
     Indication: ANXIETY
     Route: 048
  4. NITROGLYCERIN [Concomitant]
     Indication: CHEST PAIN
     Route: 060

REACTIONS (6)
  - APPLICATION SITE PRURITUS [None]
  - BREAKTHROUGH PAIN [None]
  - CARDIAC FAILURE [None]
  - GASTRIC DISORDER [None]
  - NERVOUSNESS [None]
  - PRURITUS [None]
